FAERS Safety Report 6099531-0 (Version None)
Quarter: 2009Q1

REPORT INFORMATION
  Report Type: 
  Country: None (occurrence: None)
  Receive Date: 20090226
  Receipt Date: 20090211
  Transmission Date: 20090719
  Serious: Yes (Death, Hospitalization)
  Sender: FDA-Public Use
  Company Number: 2009000197

PATIENT
  Age: 79 Year
  Sex: Male

DRUGS (14)
  1. ERLOTINIB / PLACEBO (ERLOTINIB HCL) (TABLET) (ERLOTINIB HCL) [Suspect]
     Indication: NON-SMALL CELL LUNG CANCER
     Dosage: 150 MG, ORAL
     Route: 048
     Dates: start: 20081212, end: 20090105
  2. ATENOLOL [Concomitant]
  3. SULFADIAZINE [Concomitant]
  4. FLUCONAZOLE [Concomitant]
  5. NYSTATIN ORAL SUSPENSION [Concomitant]
  6. LANSOPRAZOLE [Concomitant]
  7. LOSARTAN POTASSIUM [Concomitant]
  8. PARACETAMOL (PARACETAMOL) [Concomitant]
  9. DIGOXIN [Concomitant]
  10. ASPIRIN [Concomitant]
  11. MORPHINE ORAL [Concomitant]
  12. BISOPROLOL (BISOPROLOL) [Concomitant]
  13. ENSURE PLUS (ENSURE PLUS) [Concomitant]
  14. MORPHINE [Concomitant]

REACTIONS (10)
  - ASTHENIA [None]
  - BLOOD ALBUMIN DECREASED [None]
  - CANDIDIASIS [None]
  - DEHYDRATION [None]
  - DYSPNOEA [None]
  - FATIGUE [None]
  - HAEMOGLOBIN DECREASED [None]
  - MALAISE [None]
  - PAIN [None]
  - RASH [None]
